FAERS Safety Report 6000688-8 (Version None)
Quarter: 2008Q4

REPORT INFORMATION
  Report Type: 
  Country: None (occurrence: None)
  Receive Date: 20081215
  Receipt Date: 20081203
  Transmission Date: 20090506
  Serious: Yes (Hospitalization)
  Sender: FDA-Public Use
  Company Number: JP-ROCHE-441380

PATIENT
  Sex: Female
  Weight: 63 kg

DRUGS (5)
  1. PEGASYS [Suspect]
     Route: 058
     Dates: start: 20050914, end: 20051109
  2. PEGASYS [Suspect]
     Route: 058
     Dates: start: 20051116, end: 20051228
  3. PEGASYS [Suspect]
     Route: 058
     Dates: start: 20060104, end: 20060308
  4. NORVASC [Concomitant]
     Route: 048
     Dates: start: 19960101, end: 20050915
  5. AMLODIN [Concomitant]
     Route: 048
     Dates: start: 20050916

REACTIONS (5)
  - COUGH [None]
  - PRODUCTIVE COUGH [None]
  - RETINOPATHY [None]
  - STEVENS-JOHNSON SYNDROME [None]
  - WEIGHT DECREASED [None]
